FAERS Safety Report 4350382-4 (Version None)
Quarter: 2004Q2

REPORT INFORMATION
  Report Type: 
  Country: None (occurrence: None)
  Receive Date: 20040430
  Receipt Date: 20040226
  Transmission Date: 20050107
  Serious: No
  Sender: FDA-Public Use
  Company Number: US-BRISTOL-MYERS SQUIBB COMPANY-12521936

PATIENT
  Age: 86 Year
  Sex: Female
  Weight: 58 kg

DRUGS (6)
  1. LAC-HYDRIN [Suspect]
     Indication: DRY SKIN
     Route: 061
  2. GLUCOPHAGE [Concomitant]
  3. GLUCOTROL [Concomitant]
  4. AVANDIA [Concomitant]
  5. PROCARDIA [Concomitant]
  6. ACCUPRIL [Concomitant]

REACTIONS (1)
  - DRUG INEFFECTIVE [None]
